FAERS Safety Report 7948332-4 (Version None)
Quarter: 2011Q4

REPORT INFORMATION
  Report Type: 
  Country: None (occurrence: None)
  Receive Date: 20111123
  Receipt Date: 20111121
  Transmission Date: 20120403
  Serious: Yes (Hospitalization)
  Sender: FDA-Public Use
  Company Number: 1000025661

PATIENT

DRUGS (6)
  1. CHOLESTEROL MEDICATION NOS (CHOLESTEROL MEDICATION NOS) [Concomitant]
  2. VIIBRYD [Suspect]
     Indication: DEPRESSION
     Dosage: 10 MG (10 MG, 1 IN 1 D), ORAL
     Route: 048
     Dates: start: 20111106, end: 20111112
  3. BLOOD PRESSURE MEDICATION NOS (BLOOD PRESSURE MEDICATION NOS) [Concomitant]
  4. VITAMIN NOS (VITAMIN NOS) [Concomitant]
  5. VIIBRYD [Suspect]
     Indication: DEPRESSION
     Dosage: 40 MG (40 MG, 1 IN 1 D), ORAL
     Route: 048
     Dates: start: 20111120, end: 20111120
  6. XANAX [Concomitant]

REACTIONS (1)
  - PSYCHOTIC DISORDER [None]
